FAERS Safety Report 18618399 (Version 1)
Quarter: 2020Q4

REPORT INFORMATION
  Report Type: Spontaneous
  Country: US (occurrence: US)
  Receive Date: 20201215
  Receipt Date: 20201215
  Transmission Date: 20210114
  Serious: Yes (Hospitalization)
  Sender: FDA-Public Use
  Company Number: None

PATIENT
  Age: 83 Year
  Sex: Male
  Weight: 84.4 kg

DRUGS (13)
  1. AZITHROMYCIN 250MG [Concomitant]
     Active Substance: AZITHROMYCIN ANHYDROUS
     Dates: start: 20201201
  2. VENLAFAXINE 75MG [Concomitant]
     Active Substance: VENLAFAXINE HYDROCHLORIDE
     Dates: start: 20200203
  3. ALBUTEROL INHALER [Concomitant]
     Active Substance: ALBUTEROL
     Dates: start: 20201202
  4. BICALUTAMIDE 50MG [Concomitant]
     Active Substance: BICALUTAMIDE
     Dates: start: 20201214
  5. METFORMIN [Concomitant]
     Active Substance: METFORMIN HYDROCHLORIDE
     Dates: start: 20201214
  6. CANAGLIFLOZIN 300MG [Concomitant]
     Active Substance: CANAGLIFLOZIN
     Dates: start: 20201012
  7. GUAIFENESIN AC [Concomitant]
     Active Substance: CODEINE PHOSPHATE\GUAIFENESIN
     Dates: start: 20201202
  8. VIRTUSSIN AC [Concomitant]
     Active Substance: CODEINE PHOSPHATE\GUAIFENESIN
     Dates: start: 20201202
  9. GABAPENTIN 600MG [Concomitant]
     Active Substance: GABAPENTIN
     Dates: start: 20201214
  10. BAMLANIVIMAB. [Suspect]
     Active Substance: BAMLANIVIMAB
     Indication: SARS-COV-2 TEST POSITIVE
     Dosage: ?          OTHER FREQUENCY:ONCE;?
     Route: 042
     Dates: start: 20201211, end: 20201211
  11. BENZONATATE 100MG CAPSULES [Concomitant]
     Dates: start: 20201201
  12. PRAVASTATIN 10MG [Concomitant]
     Active Substance: PRAVASTATIN
     Dates: start: 20201012
  13. ASPIRIN 81MG EC [Concomitant]
     Dates: start: 20201214

REACTIONS (2)
  - Drug hypersensitivity [None]
  - COVID-19 [None]

NARRATIVE: CASE EVENT DATE: 20201211
